FAERS Safety Report 4918779-9 (Version None)
Quarter: 2006Q1

REPORT INFORMATION
  Report Type: 
  Country: None (occurrence: None)
  Receive Date: 20060222
  Receipt Date: 20060214
  Transmission Date: 20060701
  Serious: Yes (Other)
  Sender: FDA-Public Use
  Company Number: NO-JNJFOC-20050105091

PATIENT
  Sex: Male

DRUGS (14)
  1. REMICADE [Suspect]
     Indication: ARTHRITIS
     Route: 042
  2. REMICADE [Suspect]
     Route: 042
  3. NEXIUM [Concomitant]
     Route: 048
  4. FOSAMAX [Concomitant]
     Indication: OSTEOPOROSIS
     Route: 048
  5. PLAQUENIL [Concomitant]
     Indication: ARTHRITIS
     Route: 048
  6. COZAAR [Concomitant]
     Route: 048
  7. COZAAR [Concomitant]
     Indication: HYPERTENSION
     Route: 048
  8. TENORMIN [Concomitant]
     Indication: HYPERTENSION
     Route: 048
  9. CALCIUM GLUCONATE [Concomitant]
     Indication: OSTEOPOROSIS
     Route: 048
  10. ALBYL [Concomitant]
     Indication: HYPERTENSION
     Route: 065
  11. PREDNISOLONE [Concomitant]
     Indication: REITER'S SYNDROME
     Route: 065
  12. NORVASC [Concomitant]
     Route: 065
  13. DIURAL [Concomitant]
     Route: 065
  14. ETALPHA [Concomitant]
     Route: 065

REACTIONS (13)
  - ALOPECIA [None]
  - BLOOD CALCIUM INCREASED [None]
  - GLOMERULONEPHRITIS CHRONIC [None]
  - HYPERTENSION [None]
  - MASS [None]
  - METASTATIC SQUAMOUS CELL CARCINOMA [None]
  - NEPHROTIC SYNDROME [None]
  - PNEUMONIA [None]
  - PRURITUS [None]
  - RENAL FAILURE CHRONIC [None]
  - SINUSITIS [None]
  - SYSTEMIC LUPUS ERYTHEMATOSUS [None]
  - TONGUE NEOPLASM MALIGNANT STAGE UNSPECIFIED [None]
